FAERS Safety Report 8354485-9 (Version None)
Quarter: 2012Q2

REPORT INFORMATION
  Report Type: 
  Country: None (occurrence: None)
  Receive Date: 20120511
  Receipt Date: 20120430
  Transmission Date: 20120825
  Serious: Yes (Other)
  Sender: FDA-Public Use
  Company Number: US-ELI_LILLY_AND_COMPANY-US201205001701

PATIENT
  Sex: Female

DRUGS (2)
  1. HUMALOG MIX 75/25 [Suspect]
     Dosage: 100 U, BID
     Dates: end: 20120415
  2. HUMALOG MIX 75/25 [Suspect]
     Indication: DIABETES MELLITUS
     Dosage: 100 U, BID
     Dates: start: 20120416

REACTIONS (13)
  - INJURY ASSOCIATED WITH DEVICE [None]
  - CATARACT [None]
  - OVERDOSE [None]
  - MALAISE [None]
  - INSOMNIA [None]
  - VISUAL ACUITY REDUCED [None]
  - TREMOR [None]
  - CONVULSION [None]
  - MYOPATHY [None]
  - NEUROPATHY PERIPHERAL [None]
  - INCORRECT DOSE ADMINISTERED [None]
  - CONFUSIONAL STATE [None]
  - PAIN [None]
